FAERS Safety Report 9404796 (Version 1)
Quarter: 2013Q3

REPORT INFORMATION
  Report Type: Report from Study
  Country: US (occurrence: US)
  Receive Date: 20130717
  Receipt Date: 20130717
  Transmission Date: 20140515
  Serious: Yes (Hospitalization)
  Sender: FDA-Public Use
  Company Number: US-AMGEN-USACT2013049464

PATIENT
  Age: 56 Year
  Sex: Male

DRUGS (7)
  1. PANITUMUMAB [Suspect]
     Indication: COLORECTAL CANCER METASTATIC
     Dosage: 6 MG/KG, Q2WK
     Route: 042
     Dates: start: 20130502
  2. ERLOTINIB HYDROCHLORIDE [Concomitant]
     Indication: COLORECTAL CANCER METASTATIC
     Dosage: 150 MG, QD
     Route: 048
     Dates: start: 20130502
  3. LOPRESSOR [Concomitant]
     Dosage: UNK
     Dates: start: 20121203
  4. MOTRIN [Concomitant]
     Dosage: 800 MG, AS NECESSARY
     Route: 048
     Dates: start: 20121203
  5. PRILOSEC [Concomitant]
     Dosage: UNK
     Dates: start: 20121203
  6. NORCO [Concomitant]
     Dosage: UNK
     Dates: start: 20121203
  7. GLUCOSAMINE CHONDROITIN COMPLEX [Concomitant]

REACTIONS (2)
  - Pain [Recovering/Resolving]
  - Urinary tract infection [Recovering/Resolving]
